FAERS Safety Report 7414335-1 (Version None)
Quarter: 2011Q2

REPORT INFORMATION
  Report Type: 
  Country: None (occurrence: None)
  Receive Date: 20110414
  Receipt Date: 20110404
  Transmission Date: 20111010
  Serious: Yes (Other)
  Sender: FDA-Public Use
  Company Number: DE-JNJFOC-20110307470

PATIENT
  Age: 39 Year
  Sex: Female

DRUGS (3)
  1. DURAGESIC-100 [Suspect]
     Indication: PRODUCT USED FOR UNKNOWN INDICATION
     Route: 062
  2. CYMBALTA [Concomitant]
     Route: 065
  3. ANTELEPSIN [Concomitant]
     Route: 065

REACTIONS (9)
  - WRONG TECHNIQUE IN DRUG USAGE PROCESS [None]
  - VERTIGO [None]
  - PRODUCT QUALITY ISSUE [None]
  - SOMNOLENCE [None]
  - PRODUCT ADHESION ISSUE [None]
  - TREMOR [None]
  - INAPPROPRIATE SCHEDULE OF DRUG ADMINISTRATION [None]
  - WITHDRAWAL SYNDROME [None]
  - PAIN [None]
